FAERS Safety Report 5022923-5 (Version None)
Quarter: 2006Q2

REPORT INFORMATION
  Report Type: 
  Country: None (occurrence: None)
  Receive Date: 20060426
  Receipt Date: 20060114
  Transmission Date: 20061013
  Serious: Yes (Other)
  Sender: FDA-Public Use
  Company Number: 2006010283

PATIENT
  Age: 67 Year
  Sex: Female
  Weight: 70.3075 kg

DRUGS (7)
  1. LYRICA [Suspect]
     Indication: MULTIPLE SCLEROSIS
     Dosage: 50 MG (50 MG, 1 IN 1 D), ORAL
     Route: 048
     Dates: start: 20060114
  2. ALPRAZOLAM [Concomitant]
  3. BACLOFEN [Concomitant]
  4. AMBIEN [Concomitant]
  5. MACROGOL (MACROGOL) [Concomitant]
  6. LIDODERM PATCH (LIDOCAINE HYDROCHLORIDE) [Concomitant]
  7. LEXAPRO [Concomitant]

REACTIONS (2)
  - DIZZINESS [None]
  - SOMNOLENCE [None]
